FAERS Safety Report 17470550 (Version 1)
Quarter: 2020Q1

REPORT INFORMATION
  Report Type: Spontaneous
  Country: US (occurrence: US)
  Receive Date: 20200227
  Receipt Date: 20200227
  Transmission Date: 20200409
  Serious: No
  Sender: FDA-Public Use
  Company Number: US-JAZZ-2019-US-008437

PATIENT
  Age: 19 Month
  Sex: Female

DRUGS (1)
  1. CLOZAPINE. [Suspect]
     Active Substance: CLOZAPINE
     Indication: WRONG PRODUCT ADMINISTERED
     Dosage: UNKNOWN MG; QD
     Route: 048

REACTIONS (5)
  - Drooling [Recovered/Resolved]
  - Mental status changes [Recovered/Resolved]
  - Tachycardia [Recovered/Resolved]
  - Wrong product administered [Unknown]
  - Product dispensing error [Unknown]
